FAERS Safety Report 20337038 (Version 1)
Quarter: 2022Q1

REPORT INFORMATION
  Report Type: Spontaneous
  Country: US (occurrence: US)
  Receive Date: 20220114
  Receipt Date: 20220114
  Transmission Date: 20220424
  Serious: Yes (Other)
  Sender: FDA-Public Use
  Company Number: US-TEVA-2022-US-1998081

PATIENT
  Age: 4 Decade
  Sex: Female

DRUGS (1)
  1. FAMCICLOVIR [Suspect]
     Active Substance: FAMCICLOVIR
     Indication: Herpes virus infection
     Route: 065

REACTIONS (1)
  - Immunodeficiency [Unknown]
